FAERS Safety Report 10280100 (Version 2)
Quarter: 2014Q3

REPORT INFORMATION
  Report Type: Spontaneous
  Country: US (occurrence: None)
  Receive Date: 20140702
  Receipt Date: 20140801
  Transmission Date: 20150326
  Serious: Yes (Life-Threatening, Hospitalization, Other)
  Sender: FDA-Public Use
  Company Number: AUR-APL-2014-06230

PATIENT
  Age: 14 Year
  Sex: Male

DRUGS (8)
  1. CEFTRIAXONE. [Suspect]
     Active Substance: CEFTRIAXONE
     Indication: PNEUMONIA BACTERIAL
  2. MESALAMINE (MESALAZINE) [Concomitant]
  3. CEFTRIAXONE. [Suspect]
     Active Substance: CEFTRIAXONE
     Indication: COUGH
     Route: 042
  4. CEFTRIAXONE. [Suspect]
     Active Substance: CEFTRIAXONE
     Indication: PYREXIA
     Route: 042
  5. CEFTRIAXONE. [Suspect]
     Active Substance: CEFTRIAXONE
     Indication: COUGH
  6. METHOTREXATE (METHOTREXATE) [Concomitant]
     Active Substance: METHOTREXATE
  7. AZITHROMYCIN [Concomitant]
     Active Substance: AZITHROMYCIN ANHYDROUS
  8. CEFTRIAXONE. [Suspect]
     Active Substance: CEFTRIAXONE
     Indication: PNEUMONIA BACTERIAL
     Route: 042

REACTIONS (16)
  - Renal tubular necrosis [None]
  - Abdominal pain [None]
  - Chromaturia [None]
  - Headache [None]
  - Back pain [None]
  - Pallor [None]
  - Hepatic failure [None]
  - Blood creatinine increased [None]
  - Haemolytic anaemia [None]
  - Coagulopathy [None]
  - Tachypnoea [None]
  - Abdominal distension [None]
  - Vomiting [None]
  - Drug ineffective [None]
  - Hyperhidrosis [None]
  - Tachycardia [None]
